FAERS Safety Report 8463373-9 (Version None)
Quarter: 2012Q2

REPORT INFORMATION
  Report Type: 
  Country: None (occurrence: None)
  Receive Date: 20120625
  Receipt Date: 20120619
  Transmission Date: 20120825
  Serious: Yes (Hospitalization, Other)
  Sender: FDA-Public Use
  Company Number: FR-MERCK-1204FRA00078

PATIENT
  Age: 57 Year
  Sex: Male
  Weight: 69 kg

DRUGS (3)
  1. JANUMET [Suspect]
     Indication: TYPE 2 DIABETES MELLITUS
     Route: 048
     Dates: start: 20110727, end: 20111227
  2. JANUMET [Suspect]
     Route: 048
     Dates: start: 20101201, end: 20110727
  3. ATORVASTATIN CALCIUM [Concomitant]
     Indication: HYPERCHOLESTEROLAEMIA
     Route: 065
     Dates: start: 20100602, end: 20111227

REACTIONS (5)
  - WEIGHT DECREASED [None]
  - PANCREATITIS CHRONIC [None]
  - GLYCOSYLATED HAEMOGLOBIN INCREASED [None]
  - AUTOIMMUNE PANCREATITIS [None]
  - HEPATIC STEATOSIS [None]
